FAERS Safety Report 8717535 (Version 2)
Quarter: 2012Q4

REPORT INFORMATION
  Report Type: 
  Country: JP (occurrence: JP)
  Receive Date: 20120810
  Receipt Date: 20121001
  Transmission Date: 20130627
  Serious: Yes (Other)
  Sender: FDA-Public Use
  Company Number: JP-PFIZER INC-2012194607

PATIENT
  Age: 8 None
  Sex: Female

DRUGS (4)
  1. AMLODIN [Suspect]
     Indication: HYPERTENSION
     Dosage: 5 mg/day, UNK
     Route: 048
  2. AMLODIN [Suspect]
     Dosage: 10 mg/day, UNK
     Route: 048
  3. OLMETEC [Concomitant]
     Dosage: UNK
     Route: 048
  4. ATELEC [Concomitant]
     Dosage: UNK
     Route: 048

REACTIONS (1)
  - Pancytopenia [Not Recovered/Not Resolved]
